FAERS Safety Report 5282278-8 (Version None)
Quarter: 2007Q1

REPORT INFORMATION
  Report Type: 
  Country: None (occurrence: None)
  Receive Date: 20070331
  Receipt Date: 20070320
  Transmission Date: 20070707
  Serious: Yes (Other)
  Sender: FDA-Public Use
  Company Number: BG-PFIZER INC-2007023087

PATIENT
  Age: 38 Year
  Sex: Male

DRUGS (4)
  1. FLUCONAZOLE [Suspect]
     Indication: PNEUMONIA
  2. AMPICILLIN SODIUM/SULBACTAM SODIUM [Concomitant]
     Route: 042
  3. AZITHROMYCIN [Concomitant]
  4. SULFAMETHOXAZOLE W/TRIMETHOPRIM [Concomitant]

REACTIONS (1)
  - ADRENAL INSUFFICIENCY [None]
